FAERS Safety Report 11836803 (Version 2)
Quarter: 2019Q2

REPORT INFORMATION
  Report Type: Spontaneous
  Country: US (occurrence: US)
  Receive Date: 20151215
  Receipt Date: 20190404
  Transmission Date: 20190711
  Serious: Yes (Death, Hospitalization, Other)
  Sender: FDA-Public Use
  Company Number: US-009507513-1512USA007971

PATIENT
  Sex: Male

DRUGS (4)
  1. VASOTEC [Concomitant]
     Active Substance: ENALAPRIL MALEATE
     Dosage: 5 MILLIGRAM, QD
     Route: 065
     Dates: start: 20130912
  2. ZOLOFT [Concomitant]
     Active Substance: SERTRALINE HYDROCHLORIDE
     Indication: DEPRESSION
     Dosage: UNK, QD
     Route: 065
  3. VASOTEC [Concomitant]
     Active Substance: ENALAPRIL MALEATE
     Indication: HYPERTENSION
     Dosage: 2.5 MILLIGRAM
     Route: 065
     Dates: end: 20130912
  4. JANUVIA [Suspect]
     Active Substance: SITAGLIPTIN PHOSPHATE
     Indication: TYPE 2 DIABETES MELLITUS
     Dosage: 100 MILLIGRAM, QD
     Route: 048
     Dates: start: 201306, end: 20130912

REACTIONS (19)
  - Nasopharyngitis [Unknown]
  - Malabsorption [Unknown]
  - Muscular weakness [Recovering/Resolving]
  - Metastases to liver [Not Recovered/Not Resolved]
  - Dehydration [Unknown]
  - Dyspepsia [Unknown]
  - Gallbladder disorder [Unknown]
  - Blood pressure increased [Unknown]
  - Anxiety disorder [Unknown]
  - Depression [Unknown]
  - Anaemia of chronic disease [Unknown]
  - Biliary tract disorder [Unknown]
  - Insomnia [Unknown]
  - Platelet count decreased [Unknown]
  - Pancreatitis [Unknown]
  - Adenocarcinoma pancreas [Fatal]
  - Panic disorder [Unknown]
  - Neuropathy peripheral [Unknown]
  - Splenomegaly [Unknown]

NARRATIVE: CASE EVENT DATE: 201309
